FAERS Safety Report 8384082-0 (Version None)
Quarter: 2012Q2

REPORT INFORMATION
  Report Type: 
  Country: None (occurrence: None)
  Receive Date: 20120524
  Receipt Date: 20120516
  Transmission Date: 20120825
  Serious: Yes (Hospitalization)
  Sender: FDA-Public Use
  Company Number: US-GLAXOSMITHKLINE-A0978290A

PATIENT
  Age: 69 Year
  Sex: Female
  Weight: 76.7 kg

DRUGS (14)
  1. DOCUSATE [Concomitant]
     Dosage: 100MG TWICE PER DAY
     Route: 048
     Dates: start: 20110512
  2. OFATUMUMAB [Suspect]
     Indication: CHRONIC LYMPHOCYTIC LEUKAEMIA
     Route: 042
     Dates: start: 20120216
  3. FLUCONAZOLE [Concomitant]
     Dosage: 100MG PER DAY
     Route: 048
  4. ACYCLOVIR [Concomitant]
     Dosage: 800MG TWICE PER DAY
     Route: 048
     Dates: start: 20120105
  5. DAPSONE [Concomitant]
     Dosage: 100MG PER DAY
     Route: 048
     Dates: start: 20120217
  6. CODEINE PHOSPHATE AND ACETAMINOPHEN [Concomitant]
     Dosage: 1TAB AS REQUIRED
     Route: 048
     Dates: start: 20120105
  7. LENALIDOMIDE [Suspect]
     Indication: CHRONIC LYMPHOCYTIC LEUKAEMIA
     Dosage: 5MG PER DAY
     Route: 048
     Dates: start: 20120511
  8. LEVOTHYROXINE SODIUM [Concomitant]
     Dosage: 125MCG PER DAY
     Route: 048
     Dates: start: 20100401
  9. LANSOPRAZOLE [Concomitant]
     Dosage: 30MG PER DAY
     Route: 048
     Dates: start: 20080313
  10. ALLOPURINOL [Concomitant]
     Dosage: 300MG PER DAY
     Route: 048
  11. FUROSEMIDE [Concomitant]
     Dosage: 20MG PER DAY
     Route: 048
     Dates: start: 20120217
  12. CLONIDINE [Concomitant]
     Dosage: .5TAB TWICE PER DAY
     Route: 048
     Dates: start: 20111215
  13. ALPRAZOLAM [Concomitant]
     Indication: ANXIETY
     Dates: start: 20111215
  14. ASPIRIN [Concomitant]
     Dosage: 81MG PER DAY
     Route: 048
     Dates: start: 20120511

REACTIONS (3)
  - DYSPNOEA [None]
  - PULMONARY EMBOLISM [None]
  - PAIN IN EXTREMITY [None]
